FAERS Safety Report 5728600-7 (Version None)
Quarter: 2008Q2

REPORT INFORMATION
  Report Type: 
  Country: None (occurrence: None)
  Receive Date: 20080502
  Receipt Date: 20080502
  Transmission Date: 20081010
  Serious: Yes (Other)
  Sender: FDA-Public Use
  Company Number: None

PATIENT
  Sex: Male
  Weight: 79.3795 kg

DRUGS (1)
  1. CREST PRO-HEALTH MOUTH RINSE CETYLPYRIDNIUM CHLORIDE 0.07% CREST / PRO [Suspect]
     Indication: DENTAL CARE
     Dosage: 20 ML TWICE A DAY DENTAL
     Route: 004
     Dates: start: 20080417, end: 20080430

REACTIONS (3)
  - GINGIVAL DISCOLOURATION [None]
  - PHARMACEUTICAL PRODUCT COMPLAINT [None]
  - TOOTH DISCOLOURATION [None]
